FAERS Safety Report 18342750 (Version 1)
Quarter: 2020Q4

REPORT INFORMATION
  Report Type: Spontaneous
  Country: HR (occurrence: HR)
  Receive Date: 20201005
  Receipt Date: 20201005
  Transmission Date: 20210113
  Serious: Yes (Hospitalization)
  Sender: FDA-Public Use
  Company Number: HR-ROCHE-2688770

PATIENT
  Age: 57 Year
  Sex: Female

DRUGS (7)
  1. FULVESTRANT. [Suspect]
     Active Substance: FULVESTRANT
     Indication: PRODUCT USED FOR UNKNOWN INDICATION
     Route: 065
     Dates: start: 20190926
  2. RIBOCICLIB. [Suspect]
     Active Substance: RIBOCICLIB
     Route: 065
     Dates: start: 20190626, end: 20190910
  3. RIBOCICLIB. [Suspect]
     Active Substance: RIBOCICLIB
     Indication: PRODUCT USED FOR UNKNOWN INDICATION
     Route: 065
     Dates: start: 20191010, end: 20191010
  4. IBANDRONIC ACID. [Suspect]
     Active Substance: IBANDRONIC ACID
     Indication: PRODUCT USED FOR UNKNOWN INDICATION
     Dosage: WITHDRAWN
     Route: 065
     Dates: start: 20190626, end: 20190918
  5. LETROZOLE. [Suspect]
     Active Substance: LETROZOLE
     Indication: PRODUCT USED FOR UNKNOWN INDICATION
     Route: 065
     Dates: start: 20190626, end: 20190918
  6. RIBOCICLIB. [Suspect]
     Active Substance: RIBOCICLIB
     Route: 065
     Dates: start: 20190726, end: 20190819
  7. PALBOCICLIB [Suspect]
     Active Substance: PALBOCICLIB
     Indication: PRODUCT USED FOR UNKNOWN INDICATION
     Route: 065
     Dates: start: 20200213

REACTIONS (5)
  - Pyrexia [Unknown]
  - Vomiting [Unknown]
  - C-reactive protein increased [Unknown]
  - Hepatotoxicity [Unknown]
  - Diarrhoea [Unknown]

NARRATIVE: CASE EVENT DATE: 20190710
